FAERS Safety Report 9295932 (Version 1)
Quarter: 2013Q1

REPORT INFORMATION
  Report Type: Spontaneous
  Country: US (occurrence: None)
  Receive Date: 20121231
  Receipt Date: 20121231
  Transmission Date: 20140127
  Serious: Yes (Other)
  Sender: FDA-Public Use
  Company Number: RB-44762-2012

PATIENT
  Age: 30 Year
  Sex: Male

DRUGS (6)
  1. SUBOXONE [Suspect]
     Indication: DRUG DEPENDENCE
     Route: 060
     Dates: start: 2010
  2. SUBOXONE [Suspect]
     Dosage: 16 MG SUBOXONE FILM SUBLINGUAL,
     Dates: start: 2010
  3. FLEXERIL [Concomitant]
  4. XANAX [Concomitant]
  5. TRAZODONE [Concomitant]
  6. THIOTHIXENE [Concomitant]

REACTIONS (10)
  - Syncope [None]
  - Drug withdrawal syndrome [None]
  - Underdose [None]
  - Neck pain [None]
  - Condition aggravated [None]
  - Back pain [None]
  - Decreased appetite [None]
  - Diarrhoea [None]
  - Feeling abnormal [None]
  - Dehydration [None]
